FAERS Safety Report 6566179-0 (Version None)
Quarter: 2010Q1

REPORT INFORMATION
  Report Type: 
  Country: None (occurrence: None)
  Receive Date: 20100202
  Receipt Date: 20100121
  Transmission Date: 20100710
  Serious: Yes (Other)
  Sender: FDA-Public Use
  Company Number: US-CELGENEUS-163-20785-10011570

PATIENT
  Sex: Female

DRUGS (1)
  1. THALOMID [Suspect]
     Route: 048
     Dates: start: 20091101

REACTIONS (4)
  - DISORIENTATION [None]
  - DYSSTASIA [None]
  - FEELING ABNORMAL [None]
  - HYPERSENSITIVITY [None]
